FAERS Safety Report 25838607 (Version 1)
Quarter: 2025Q3

REPORT INFORMATION
  Report Type: Spontaneous
  Country: EU (occurrence: EU)
  Receive Date: 20250923
  Receipt Date: 20250923
  Transmission Date: 20251021
  Serious: Yes (Other)
  Sender: AMGEN
  Company Number: EU-AMGEN-ITASP2025185973

PATIENT

DRUGS (4)
  1. ADALIMUMAB [Suspect]
     Active Substance: ADALIMUMAB
     Indication: Psoriasis
     Route: 065
  2. ETANERCEPT [Suspect]
     Active Substance: ETANERCEPT
     Indication: Psoriasis
     Route: 065
  3. USTEKINUMAB [Suspect]
     Active Substance: USTEKINUMAB
     Indication: Psoriasis
     Route: 065
  4. APREMILAST [Suspect]
     Active Substance: APREMILAST
     Indication: Psoriasis
     Route: 065

REACTIONS (14)
  - Bladder cancer recurrent [Unknown]
  - Breast cancer recurrent [Unknown]
  - Leiomyosarcoma recurrent [Unknown]
  - Pleural mesothelioma [Unknown]
  - Breast cancer [Unknown]
  - Gastric cancer [Unknown]
  - Malignant melanoma [Unknown]
  - Renal cancer [Unknown]
  - Uterine cancer [Unknown]
  - Cholangiocarcinoma [Unknown]
  - Adverse event [Unknown]
  - Treatment failure [Unknown]
  - Therapeutic product effect decreased [Unknown]
  - Drug ineffective [Unknown]
